FAERS Safety Report 18501876 (Version 1)
Quarter: 2020Q4

REPORT INFORMATION
  Report Type: Spontaneous
  Country: CA (occurrence: CA)
  Receive Date: 20201113
  Receipt Date: 20201113
  Transmission Date: 20210114
  Serious: Yes (Hospitalization)
  Sender: FDA-Public Use
  Company Number: CA-JNJFOC-20201107467

PATIENT
  Age: 30 Year
  Sex: Male
  Weight: 66 kg

DRUGS (2)
  1. INFLIXIMAB, RECOMBINANT [Suspect]
     Active Substance: INFLIXIMAB
     Indication: COLITIS ULCERATIVE
     Route: 042
  2. PREDNISONE. [Concomitant]
     Active Substance: PREDNISONE
     Route: 065

REACTIONS (10)
  - Weight increased [Not Recovered/Not Resolved]
  - Chills [Not Recovered/Not Resolved]
  - Vomiting [Not Recovered/Not Resolved]
  - Heart rate increased [Not Recovered/Not Resolved]
  - Off label use [Not Recovered/Not Resolved]
  - Blood pressure systolic increased [Not Recovered/Not Resolved]
  - Pyrexia [Not Recovered/Not Resolved]
  - Incorrect dose administered [Not Recovered/Not Resolved]
  - Product use issue [Not Recovered/Not Resolved]
  - Condition aggravated [Not Recovered/Not Resolved]
